FAERS Safety Report 7594430-7 (Version None)
Quarter: 2011Q3

REPORT INFORMATION
  Report Type: 
  Country: None (occurrence: None)
  Receive Date: 20110707
  Receipt Date: 20110625
  Transmission Date: 20111222
  Serious: Yes (Hospitalization, Other)
  Sender: FDA-Public Use
  Company Number: GB-PAR PHARMACEUTICAL, INC-2011SCPR003091

PATIENT
  Age: 2 Year
  Sex: Male

DRUGS (3)
  1. IBUPROFEN [Suspect]
     Indication: UROSEPSIS
     Dosage: UNK, UNKNOWN
     Route: 065
  2. TRIMETHOPRIM [Concomitant]
     Indication: UROSEPSIS
     Dosage: UNK, UNKNOWN
     Route: 048
  3. ACETAMINOPHEN [Concomitant]
     Indication: UROSEPSIS
     Dosage: UNK, UNKNOWN
     Route: 065

REACTIONS (2)
  - RENAL PAPILLARY NECROSIS [None]
  - URETERIC OBSTRUCTION [None]
